FAERS Safety Report 7379254-8 (Version None)
Quarter: 2011Q1

REPORT INFORMATION
  Report Type: 
  Country: None (occurrence: None)
  Receive Date: 20110328
  Receipt Date: 20101122
  Transmission Date: 20110831
  Serious: Yes (Hospitalization)
  Sender: FDA-Public Use
  Company Number: ES-AMGEN LTD.-ESPCT2010000324

PATIENT
  Age: 77 Year
  Sex: Male

DRUGS (7)
  1. HEPARIN [Concomitant]
     Dosage: UNK UNK, QD
  2. LORAZEPAM [Concomitant]
     Dosage: 1 MG, QD
     Dates: start: 20100626
  3. BEVACIZUMAB [Concomitant]
     Dosage: UNK
     Dates: start: 20100330, end: 20100909
  4. OXALIPLATIN [Concomitant]
     Dosage: UNK
     Dates: start: 20100330, end: 20101019
  5. PANITUMUMAB [Suspect]
     Indication: COLORECTAL CANCER METASTATIC
     Dosage: UNK UNK, Q3WK
     Dates: start: 20100610
  6. CAPECITABINE [Concomitant]
     Dosage: UNK
     Dates: start: 20090330, end: 20100909
  7. IRINOTECAN HYDROCHLORIDE [Concomitant]
     Dosage: 345 MG, Q2WK
     Route: 042
     Dates: start: 20100610

REACTIONS (1)
  - CONFUSIONAL STATE [None]
